FAERS Safety Report 4590869-2 (Version None)
Quarter: 2005Q1

REPORT INFORMATION
  Report Type: 
  Country: None (occurrence: None)
  Receive Date: 20050225
  Receipt Date: 20040330
  Transmission Date: 20050727
  Serious: No
  Sender: FDA-Public Use
  Company Number: 04US02400 TEAM B

PATIENT
  Sex: Male

DRUGS (1)
  1. ABACAVIR [Suspect]
     Indication: DRUG USE FOR UNKNOWN INDICATION
     Route: 048

REACTIONS (1)
  - RASH MACULO-PAPULAR [None]
